FAERS Safety Report 9552208 (Version 1)
Quarter: 2013Q3

REPORT INFORMATION
  Report Type: Spontaneous
  Country: US (occurrence: US)
  Receive Date: 20130925
  Receipt Date: 20130925
  Transmission Date: 20140515
  Serious: Yes (Hospitalization)
  Sender: FDA-Public Use
  Company Number: PHHY2013US104318

PATIENT
  Age: 37 Year
  Sex: Female

DRUGS (3)
  1. THIAMAZOLE [Suspect]
     Indication: HYPERTHYROIDISM
     Dosage: 7.5 MG, PER DAY
  2. METOPROLOL [Concomitant]
  3. PARACETAMOL [Concomitant]

REACTIONS (5)
  - Tooth abscess [Recovered/Resolved]
  - Facial pain [Recovered/Resolved]
  - Swelling [Recovered/Resolved]
  - Agranulocytosis [Recovered/Resolved]
  - Febrile neutropenia [Recovered/Resolved]
